FAERS Safety Report 12507918 (Version 3)
Quarter: 2016Q3

REPORT INFORMATION
  Report Type: Spontaneous
  Country: AU (occurrence: AU)
  Receive Date: 20160629
  Receipt Date: 20160804
  Transmission Date: 20161109
  Serious: Yes (Hospitalization, Other)
  Sender: FDA-Public Use
  Company Number: AU-REGENERON PHARMACEUTICALS, INC.-2016-18722

PATIENT

DRUGS (2)
  1. EYLEA [Suspect]
     Active Substance: AFLIBERCEPT
     Indication: PRODUCT USED FOR UNKNOWN INDICATION
     Dosage: UNK UNK, Q8WK, BE
     Dates: start: 20151012
  2. EYLEA [Suspect]
     Active Substance: AFLIBERCEPT
     Dosage: UNK
     Dates: start: 20160615, end: 20160615

REACTIONS (3)
  - Product use issue [Unknown]
  - Endophthalmitis [Not Recovered/Not Resolved]
  - Vitrectomy [Recovering/Resolving]

NARRATIVE: CASE EVENT DATE: 20160618
